FAERS Safety Report 7772119-9 (Version None)
Quarter: 2011Q3

REPORT INFORMATION
  Report Type: 
  Country: None (occurrence: None)
  Receive Date: 20110922
  Receipt Date: 20110112
  Transmission Date: 20111222
  Serious: No
  Sender: FDA-Public Use
  Company Number: US-ASTRAZENECA-2011SE02228

PATIENT
  Age: 45 Year
  Sex: Male

DRUGS (2)
  1. SEROQUEL XR [Suspect]
     Indication: ASPERGER'S DISORDER
     Route: 048
  2. SEROQUEL XR [Suspect]
     Indication: MOOD ALTERED
     Route: 048

REACTIONS (8)
  - DISTURBANCE IN ATTENTION [None]
  - SLUGGISHNESS [None]
  - FEELING ABNORMAL [None]
  - EMOTIONAL DISTRESS [None]
  - INFECTION SUSCEPTIBILITY INCREASED [None]
  - THERAPEUTIC RESPONSE UNEXPECTED [None]
  - INSOMNIA [None]
  - DRUG DOSE OMISSION [None]
